FAERS Safety Report 9934878 (Version 2)
Quarter: 2014Q1

REPORT INFORMATION
  Report Type: Spontaneous
  Country: JP (occurrence: JP)
  Receive Date: 20140228
  Receipt Date: 20140305
  Transmission Date: 20141002
  Serious: Yes (Death)
  Sender: FDA-Public Use
  Company Number: JP-009507513-1402JPN011755

PATIENT
  Age: 83 Year
  Sex: Male

DRUGS (4)
  1. HYDROCORTISONE SODIUM PHOSPHATE [Suspect]
     Indication: MULTI-ORGAN FAILURE
     Dosage: UNK
     Route: 042
  2. DORIPENEM [Concomitant]
     Indication: SEPTIC SHOCK
     Route: 042
  3. DORIPENEM [Concomitant]
     Indication: PNEUMONIA
  4. GLOBULIN, IMMUNE [Concomitant]

REACTIONS (3)
  - Cell-mediated immune deficiency [Fatal]
  - Superinfection [Fatal]
  - Candida sepsis [Fatal]
